FAERS Safety Report 21634566 (Version 1)
Quarter: 2022Q4

REPORT INFORMATION
  Report Type: Spontaneous
  Country: US (occurrence: US)
  Receive Date: 20221123
  Receipt Date: 20221123
  Transmission Date: 20230112
  Serious: No
  Sender: FDA-Public Use
  Company Number: US-BRISTOL-MYERS SQUIBB COMPANY-2022-142165

PATIENT
  Sex: Female

DRUGS (1)
  1. ELIQUIS [Suspect]
     Active Substance: APIXABAN
     Indication: Product used for unknown indication
     Dosage: DOSE : UNAVAILABLE (CALLER DECLINED);     FREQ : UNAVAILABLE (CALLER DECLINED)
     Route: 065

REACTIONS (3)
  - Headache [Unknown]
  - Cough [Unknown]
  - Feeling abnormal [Unknown]
